FAERS Safety Report 24373072 (Version 5)
Quarter: 2025Q2

REPORT INFORMATION
  Report Type: Report from Study
  Country: US (occurrence: US)
  Receive Date: 20240927
  Receipt Date: 20250507
  Transmission Date: 20250717
  Serious: No
  Sender: SUNOVION
  Company Number: US-SUMITOMO PHARMA SWITZERLAND GMBH-2024SPA002616

PATIENT

DRUGS (10)
  1. ORGOVYX [Suspect]
     Active Substance: RELUGOLIX
     Indication: Prostate cancer
     Dosage: 360 MG, SINGLE
     Route: 048
  2. ORGOVYX [Suspect]
     Active Substance: RELUGOLIX
     Dosage: 120 MG, QD
     Route: 048
     Dates: start: 20240821
  3. OMEPRAZOLE [Concomitant]
     Active Substance: OMEPRAZOLE
     Route: 065
  4. PAROXETINE [Concomitant]
     Active Substance: PAROXETINE
     Route: 065
  5. TYLENOL EXTRA STRENGTH [Concomitant]
     Active Substance: ACETAMINOPHEN
     Route: 065
  6. ATORVASTATIN CALCIUM [Concomitant]
     Active Substance: ATORVASTATIN CALCIUM
     Route: 065
  7. IBUPROFEN [Concomitant]
     Active Substance: IBUPROFEN
     Route: 065
  8. ELIQUIS [Concomitant]
     Active Substance: APIXABAN
     Route: 065
  9. FAMOTIDINE [Concomitant]
     Active Substance: FAMOTIDINE
     Route: 065
  10. MIDODRINE [Concomitant]
     Active Substance: MIDODRINE
     Route: 065

REACTIONS (8)
  - Feeling abnormal [Recovered/Resolved]
  - Brain fog [Unknown]
  - Abdominal discomfort [Unknown]
  - Malaise [Unknown]
  - Arthralgia [Unknown]
  - Fatigue [Recovered/Resolved]
  - Musculoskeletal discomfort [Unknown]
  - Hot flush [Unknown]
